FAERS Safety Report 5398164-9 (Version None)
Quarter: 2007Q3

REPORT INFORMATION
  Report Type: 
  Country: None (occurrence: None)
  Receive Date: 20070726
  Receipt Date: 20070725
  Transmission Date: 20080115
  Serious: Yes (Hospitalization)
  Sender: FDA-Public Use
  Company Number: ES-PFIZER INC-2007060769

PATIENT
  Age: 56 Year
  Sex: Female

DRUGS (4)
  1. ALPRAZOLAM [Suspect]
     Indication: ANXIETY
     Route: 048
     Dates: start: 20070222, end: 20070228
  2. SEGURIL [Interacting]
     Indication: PROPHYLAXIS
     Route: 048
  3. BOI K [Concomitant]
     Route: 048
  4. ASCORBIC ACID [Concomitant]

REACTIONS (6)
  - BACTERIAL INFECTION [None]
  - BLOOD POTASSIUM DECREASED [None]
  - BLOOD SODIUM DECREASED [None]
  - DRUG INTERACTION [None]
  - ENCEPHALOPATHY [None]
  - EPISTAXIS [None]
